FAERS Safety Report 8153909 (Version 2)
Quarter: 2013Q3

REPORT INFORMATION
  Report Type: Spontaneous
  Country: JP (occurrence: JP)
  Receive Date: 20110923
  Receipt Date: 20130709
  Transmission Date: 20140515
  Serious: Yes (Death)
  Sender: FDA-Public Use
  Company Number: JP-ROCHE-803917

PATIENT
  Age: 73 Year
  Sex: Female
  Weight: 44 kg

DRUGS (5)
  1. AVASTIN [Suspect]
     Indication: COLON CANCER RECURRENT
     Route: 041
  2. ELPLAT [Concomitant]
     Indication: COLON CANCER RECURRENT
     Dosage: DOSAGE IS UNCERTAIN.
     Route: 041
  3. LEVOFOLINATE [Concomitant]
     Indication: COLON CANCER RECURRENT
     Dosage: DOSAGE IS UNCERTAIN.
     Route: 041
  4. 5-FU [Concomitant]
     Indication: COLON CANCER RECURRENT
     Dosage: DOSAGE IS UNCERTAIN.
     Route: 040
  5. 5-FU [Concomitant]
     Indication: COLON CANCER RECURRENT
     Dosage: DOSAGE IS UNCERTAIN.
     Route: 041

REACTIONS (1)
  - Haemorrhagic cerebral infarction [Fatal]
